FAERS Safety Report 20079932 (Version 1)
Quarter: 2021Q4

REPORT INFORMATION
  Report Type: Spontaneous
  Country: DE (occurrence: DE)
  Receive Date: 20211117
  Receipt Date: 20211117
  Transmission Date: 20220303
  Serious: Yes (Hospitalization)
  Sender: FDA-Public Use
  Company Number: DE-ADRED-07111-01

PATIENT
  Age: 75 Year
  Sex: Male
  Weight: 98 kg

DRUGS (7)
  1. PRAMIPEXOLE [Suspect]
     Active Substance: PRAMIPEXOLE
     Indication: Product used for unknown indication
     Dosage: 0.35 MILLIGRAM, Q8H, 0.35 MG, 1-1-1-0, TABLETTEN
     Route: 048
  2. CARBIDOPA\LEVODOPA [Suspect]
     Active Substance: CARBIDOPA\LEVODOPA
     Indication: Product used for unknown indication
     Dosage: 1 DOSAGE FORM, BID, 25|100 MG, 1-0-1-0, RETARD-TABLETTEN
     Route: 048
  3. TIOTROPIUM BROMIDE [Concomitant]
     Active Substance: TIOTROPIUM BROMIDE
     Dosage: 2.5 MICROGRAM, PRN, 2.5 ?G, BEDARF, DOSIERAEROSOL
     Route: 055
  4. OMEPRAZOL                          /00661201/ [Concomitant]
     Dosage: 20 MILLIGRAM, QD, 20 MG, 1-0-0-0, KAPSELN
     Route: 048
  5. FLUTICASONE PROPIONATE\SALMETEROL XINAFOATE [Concomitant]
     Active Substance: FLUTICASONE PROPIONATE\SALMETEROL XINAFOATE
     Dosage: UNK UNK, BID, 500|50 ?G, 1-0-1-0, INHALATIONSPULVER
     Route: 055
  6. SIMVASTATIN [Concomitant]
     Active Substance: SIMVASTATIN
     Dosage: 40 MILLIGRAM, QD, 40 MG, 0-0-1-0, TABLETTEN
     Route: 048
  7. CLOPIDOGREL [Concomitant]
     Active Substance: CLOPIDOGREL BISULFATE
     Dosage: 75 MILLIGRAM, QD, 75 MG, 1-0-0-0, TABLETTEN
     Route: 048

REACTIONS (2)
  - Visual impairment [Unknown]
  - Blindness transient [Unknown]

NARRATIVE: CASE EVENT DATE: 20210115
